FAERS Safety Report 4888179-9 (Version None)
Quarter: 2006Q1

REPORT INFORMATION
  Report Type: 
  Country: None (occurrence: None)
  Receive Date: 20060123
  Receipt Date: 20060110
  Transmission Date: 20060701
  Serious: Yes (Other)
  Sender: FDA-Public Use
  Company Number: PHBS2006JP00815

PATIENT
  Age: 28 Year
  Sex: Female

DRUGS (1)
  1. NEORAL [Suspect]
     Indication: STEM CELL TRANSPLANT
     Route: 048
     Dates: start: 20051001

REACTIONS (1)
  - DEAFNESS BILATERAL [None]
